FAERS Safety Report 5320046-9 (Version None)
Quarter: 2007Q2

REPORT INFORMATION
  Report Type: 
  Country: None (occurrence: None)
  Receive Date: 20070509
  Receipt Date: 20070504
  Transmission Date: 20071010
  Serious: Yes (Hospitalization)
  Sender: FDA-Public Use
  Company Number: FR-AVENTIS-200710807FR

PATIENT
  Age: 82 Year
  Sex: Female

DRUGS (15)
  1. ARAVA [Suspect]
     Indication: RHEUMATOID ARTHRITIS
     Route: 048
     Dates: start: 20060601, end: 20070130
  2. CELECTOL                           /00806301/ [Concomitant]
     Route: 048
  3. KARDEGIC                           /00002703/ [Concomitant]
     Route: 048
  4. KALEORID [Concomitant]
     Route: 048
  5. FEROGRAD [Concomitant]
     Route: 048
  6. NEXIUM [Concomitant]
     Route: 048
  7. SOLUPRED                           /00016201/ [Concomitant]
     Route: 048
  8. STILNOX                            /00914901/ [Concomitant]
     Route: 048
  9. TEMESTA                            /00273201/ [Concomitant]
     Route: 048
  10. LASILIX                            /00032601/ [Concomitant]
     Route: 048
  11. DUPHALAC                           /00163401/ [Concomitant]
     Route: 048
  12. EFFEXOR [Concomitant]
     Route: 048
  13. TEGRETOL [Concomitant]
     Route: 048
  14. ATHYMIL [Concomitant]
     Route: 048
  15. SCOPODERM                          /00008701/ [Concomitant]
     Route: 061

REACTIONS (7)
  - C-REACTIVE PROTEIN INCREASED [None]
  - DYSGLOBULINAEMIA [None]
  - GENERAL PHYSICAL HEALTH DETERIORATION [None]
  - INFLAMMATION [None]
  - RED BLOOD CELL SEDIMENTATION RATE INCREASED [None]
  - SERUM FERRITIN INCREASED [None]
  - WEIGHT DECREASED [None]
